FAERS Safety Report 6169739-4 (Version None)
Quarter: 2009Q2

REPORT INFORMATION
  Report Type: 
  Country: None (occurrence: None)
  Receive Date: 20090428
  Receipt Date: 20090423
  Transmission Date: 20091009
  Serious: Yes (Life-Threatening, Hospitalization)
  Sender: FDA-Public Use
  Company Number: SE-ROCHE-629032

PATIENT

DRUGS (3)
  1. CAPECITABINE [Suspect]
     Route: 065
     Dates: start: 20081211
  2. BEVACIZUMAB [Suspect]
     Route: 065
     Dates: start: 20081211
  3. OXALIPLATIN [Suspect]
     Route: 065
     Dates: start: 20081211

REACTIONS (1)
  - GASTROINTESTINAL PERFORATION [None]
